FAERS Safety Report 6307878-5 (Version None)
Quarter: 2009Q3

REPORT INFORMATION
  Report Type: 
  Country: None (occurrence: None)
  Receive Date: 20090813
  Receipt Date: 20090804
  Transmission Date: 20100115
  Serious: Yes (Hospitalization)
  Sender: FDA-Public Use
  Company Number: PHHY2009FR33004

PATIENT
  Sex: Male

DRUGS (1)
  1. TAREG [Suspect]
     Dosage: 80 MG DAILY
     Dates: start: 20090706

REACTIONS (4)
  - DERMATITIS BULLOUS [None]
  - EOSINOPHILIA [None]
  - PEMPHIGOID [None]
  - PRURITUS [None]
